FAERS Safety Report 6574952-8 (Version None)
Quarter: 2010Q1

REPORT INFORMATION
  Report Type: 
  Country: None (occurrence: None)
  Receive Date: 20100209
  Receipt Date: 20100203
  Transmission Date: 20100710
  Serious: Yes (Other)
  Sender: FDA-Public Use
  Company Number: PHHY2009BR44658

PATIENT
  Sex: Female

DRUGS (3)
  1. EXELON [Suspect]
     Dosage: 3 MG
  2. EXELON [Suspect]
     Dosage: 1.5 MG
  3. DIOVAN HCT [Suspect]
     Dosage: 160 MG

REACTIONS (1)
  - CEREBROVASCULAR ACCIDENT [None]
